FAERS Safety Report 13408865 (Version 2)
Quarter: 2017Q4

REPORT INFORMATION
  Report Type: Spontaneous
  Country: US (occurrence: US)
  Receive Date: 20170406
  Receipt Date: 20171123
  Transmission Date: 20180320
  Serious: No
  Sender: FDA-Public Use
  Company Number: US-JNJFOC-20170225074

PATIENT
  Age: 15 Year
  Sex: Male

DRUGS (36)
  1. RISPERDAL [Suspect]
     Active Substance: RISPERIDONE
     Indication: AFFECT LABILITY
     Dosage: 0.25 MG AND 0.5 MG ONCE AT BEDTIME
     Route: 048
     Dates: start: 20040825
  2. RISPERDAL [Suspect]
     Active Substance: RISPERIDONE
     Indication: DISTURBANCE IN SOCIAL BEHAVIOUR
     Dosage: 0.25 MG AND 0.5 MG ONCE AT BEDTIME
     Route: 048
     Dates: start: 20040825
  3. RISPERDAL [Suspect]
     Active Substance: RISPERIDONE
     Indication: ATTENTION DEFICIT/HYPERACTIVITY DISORDER
     Route: 048
     Dates: start: 20060216
  4. RISPERDAL [Suspect]
     Active Substance: RISPERIDONE
     Indication: ATTENTION DEFICIT/HYPERACTIVITY DISORDER
     Dosage: HALF TABLET THRICE A DAY
     Route: 048
     Dates: start: 20060421
  5. RISPERDAL [Suspect]
     Active Substance: RISPERIDONE
     Indication: ANGER
     Route: 048
     Dates: start: 20060216
  6. RISPERDAL [Suspect]
     Active Substance: RISPERIDONE
     Indication: DEPRESSION
     Dosage: HALF TABLET THRICE A DAY
     Route: 048
     Dates: start: 20051216
  7. RISPERDAL [Suspect]
     Active Substance: RISPERIDONE
     Indication: DEPRESSION
     Dosage: 0.25 MG AND 0.5 MG ONCE AT BEDTIME
     Route: 048
     Dates: start: 20040825
  8. RISPERDAL [Suspect]
     Active Substance: RISPERIDONE
     Indication: DISTURBANCE IN SOCIAL BEHAVIOUR
     Dosage: HALF TABLET THRICE A DAY
     Route: 048
     Dates: start: 20060421
  9. RISPERDAL [Suspect]
     Active Substance: RISPERIDONE
     Indication: ANGER
     Route: 048
     Dates: start: 20040609
  10. RISPERDAL [Suspect]
     Active Substance: RISPERIDONE
     Indication: DEPRESSION
     Dosage: HALF TABLET THRICE A DAY
     Route: 048
     Dates: start: 20060421
  11. RISPERDAL [Suspect]
     Active Substance: RISPERIDONE
     Indication: DEPRESSION
     Route: 048
     Dates: start: 20040609
  12. RISPERDAL [Suspect]
     Active Substance: RISPERIDONE
     Indication: AFFECT LABILITY
     Route: 048
     Dates: start: 20060216
  13. RISPERDAL [Suspect]
     Active Substance: RISPERIDONE
     Indication: ANGER
     Route: 048
     Dates: start: 20040728
  14. RISPERDAL [Suspect]
     Active Substance: RISPERIDONE
     Indication: ANGER
     Dosage: HALF TABLET THRICE A DAY
     Route: 048
     Dates: start: 20051216
  15. RISPERDAL [Suspect]
     Active Substance: RISPERIDONE
     Indication: DEPRESSION
     Route: 048
     Dates: start: 20060216
  16. RISPERDAL [Suspect]
     Active Substance: RISPERIDONE
     Indication: DISTURBANCE IN SOCIAL BEHAVIOUR
     Dosage: HALF TABLET THRICE A DAY
     Route: 048
     Dates: start: 20051216
  17. RISPERDAL [Suspect]
     Active Substance: RISPERIDONE
     Indication: ATTENTION DEFICIT/HYPERACTIVITY DISORDER
     Route: 048
     Dates: start: 20040609
  18. RISPERDAL [Suspect]
     Active Substance: RISPERIDONE
     Indication: ATTENTION DEFICIT/HYPERACTIVITY DISORDER
     Route: 048
     Dates: start: 20040913
  19. RISPERDAL [Suspect]
     Active Substance: RISPERIDONE
     Indication: ANGER
     Dosage: HALF TABLET THRICE A DAY
     Route: 048
     Dates: start: 20060421
  20. RISPERDAL [Suspect]
     Active Substance: RISPERIDONE
     Indication: DEPRESSION
     Route: 048
     Dates: start: 20040728
  21. RISPERDAL [Suspect]
     Active Substance: RISPERIDONE
     Indication: DEPRESSION
     Route: 048
     Dates: start: 20040913
  22. RISPERDAL [Suspect]
     Active Substance: RISPERIDONE
     Indication: DISTURBANCE IN SOCIAL BEHAVIOUR
     Route: 048
     Dates: start: 20060216
  23. RISPERDAL [Suspect]
     Active Substance: RISPERIDONE
     Indication: ATTENTION DEFICIT/HYPERACTIVITY DISORDER
     Route: 048
     Dates: start: 20040728
  24. RISPERDAL [Suspect]
     Active Substance: RISPERIDONE
     Indication: ATTENTION DEFICIT/HYPERACTIVITY DISORDER
     Dosage: HALF TABLET THRICE A DAY
     Route: 048
     Dates: start: 20051216
  25. RISPERDAL [Suspect]
     Active Substance: RISPERIDONE
     Indication: ATTENTION DEFICIT/HYPERACTIVITY DISORDER
     Dosage: 0.25 MG AND 0.5 MG ONCE AT BEDTIME
     Route: 048
     Dates: start: 20040825
  26. RISPERDAL [Suspect]
     Active Substance: RISPERIDONE
     Indication: AFFECT LABILITY
     Route: 048
     Dates: start: 20040609
  27. RISPERDAL [Suspect]
     Active Substance: RISPERIDONE
     Indication: ANGER
     Route: 048
     Dates: start: 20040913
  28. RISPERDAL [Suspect]
     Active Substance: RISPERIDONE
     Indication: AFFECT LABILITY
     Route: 048
     Dates: start: 20040913
  29. RISPERDAL [Suspect]
     Active Substance: RISPERIDONE
     Indication: DISTURBANCE IN SOCIAL BEHAVIOUR
     Route: 048
     Dates: start: 20040728
  30. RISPERDAL [Suspect]
     Active Substance: RISPERIDONE
     Indication: DISTURBANCE IN SOCIAL BEHAVIOUR
     Route: 048
     Dates: start: 20040913
  31. RISPERDAL [Suspect]
     Active Substance: RISPERIDONE
     Indication: AFFECT LABILITY
     Route: 048
     Dates: start: 20040728
  32. RISPERDAL [Suspect]
     Active Substance: RISPERIDONE
     Indication: AFFECT LABILITY
     Dosage: HALF TABLET THRICE A DAY
     Route: 048
     Dates: start: 20051216
  33. RISPERDAL [Suspect]
     Active Substance: RISPERIDONE
     Indication: AFFECT LABILITY
     Dosage: HALF TABLET THRICE A DAY
     Route: 048
     Dates: start: 20060421
  34. RISPERDAL [Suspect]
     Active Substance: RISPERIDONE
     Indication: ANGER
     Dosage: 0.25 MG AND 0.5 MG ONCE AT BEDTIME
     Route: 048
     Dates: start: 20040825
  35. RISPERDAL [Suspect]
     Active Substance: RISPERIDONE
     Indication: DISTURBANCE IN SOCIAL BEHAVIOUR
     Route: 048
     Dates: start: 20040609
  36. STRATTERA [Concomitant]
     Active Substance: ATOMOXETINE HYDROCHLORIDE
     Route: 065

REACTIONS (3)
  - Gynaecomastia [Unknown]
  - Obesity [Unknown]
  - Emotional disorder [Unknown]

NARRATIVE: CASE EVENT DATE: 20051216
